APPROVED DRUG PRODUCT: CINACALCET HYDROCHLORIDE
Active Ingredient: CINACALCET HYDROCHLORIDE
Strength: 90MG
Dosage Form/Route: TABLET;ORAL
Application: A204364 | Product #003
Applicant: JEROME STEVENS PHARMACEUTICALS INC
Approved: Dec 2, 2021 | RLD: No | RS: No | Type: DISCN